FAERS Safety Report 9238636 (Version 1)
Quarter: 2013Q2

REPORT INFORMATION
  Report Type: Spontaneous
  Country: US (occurrence: None)
  Receive Date: 20130417
  Receipt Date: 20130417
  Transmission Date: 20140414
  Serious: Yes (Other)
  Sender: FDA-Public Use
  Company Number: None

PATIENT
  Age: 50 Year
  Sex: Female
  Weight: 83.92 kg

DRUGS (1)
  1. SERTRALINE [Suspect]
     Indication: DEPRESSION
     Dosage: 200 MG QHS PO
     Route: 048
     Dates: start: 20130320, end: 20130410

REACTIONS (6)
  - Product substitution issue [None]
  - Depressed mood [None]
  - Fatigue [None]
  - Apathy [None]
  - Malaise [None]
  - Headache [None]
